FAERS Safety Report 5159731-0 (Version None)
Quarter: 2006Q4

REPORT INFORMATION
  Report Type: 
  Country: None (occurrence: None)
  Receive Date: 20061129
  Receipt Date: 20051013
  Transmission Date: 20070319
  Serious: No
  Sender: FDA-Public Use
  Company Number: US-GLAXOSMITHKLINE-A0578163A

PATIENT
  Age: 59 Year
  Sex: Female
  Weight: 68.2 kg

DRUGS (8)
  1. WELLBUTRIN SR [Suspect]
     Indication: FIBROMYALGIA
     Dosage: 100MG TWICE PER DAY
     Route: 048
     Dates: start: 20050301, end: 20051001
  2. BUPROPION HCL [Suspect]
     Indication: DEPRESSION
     Dosage: 100MG TWICE PER DAY
     Route: 048
     Dates: start: 20060313
  3. LEVOXYL [Concomitant]
  4. LEVOXYL [Concomitant]
     Indication: HYPOTHYROIDISM
  5. LIPITOR [Concomitant]
     Indication: BLOOD CHOLESTEROL INCREASED
     Dosage: 10MG PER DAY
     Route: 048
     Dates: start: 20060124
  6. NORTRIPTYLINE HCL [Concomitant]
     Indication: FIBROMYALGIA
     Dosage: 35MG PER DAY
     Route: 048
     Dates: start: 19960101
  7. GUAIFENESIN [Concomitant]
     Indication: FIBROMYALGIA
     Dosage: 600MG TWICE PER DAY
     Route: 048
     Dates: start: 19960101
  8. TYLENOL [Concomitant]
     Indication: PAIN

REACTIONS (6)
  - ALOPECIA [None]
  - DEPRESSION [None]
  - FATIGUE [None]
  - HYPERHIDROSIS [None]
  - NAIL DISORDER [None]
  - POOR QUALITY SLEEP [None]
